FAERS Safety Report 14907556 (Version 1)
Quarter: 2018Q2

REPORT INFORMATION
  Report Type: Spontaneous
  Country: US (occurrence: US)
  Receive Date: 20180517
  Receipt Date: 20180517
  Transmission Date: 20180711
  Serious: No
  Sender: FDA-Public Use
  Company Number: ALCN2014US001338

PATIENT
  Age: 85 Year
  Sex: Male

DRUGS (2)
  1. ICAPS MV [Suspect]
     Active Substance: MINERALS\VITAMINS
     Indication: MACULAR DEGENERATION
     Dosage: 4 U, QD
     Route: 048
     Dates: start: 20140220, end: 20140221
  2. ICAPS MV [Suspect]
     Active Substance: MINERALS\VITAMINS
     Dosage: 4 U, QD
     Route: 048
     Dates: start: 20140220, end: 20140221

REACTIONS (2)
  - Product odour abnormal [Unknown]
  - Dysgeusia [Recovered/Resolved]

NARRATIVE: CASE EVENT DATE: 20140220
